FAERS Safety Report 24385867 (Version 1)
Quarter: 2024Q4

REPORT INFORMATION
  Report Type: Spontaneous
  Country: US (occurrence: None)
  Receive Date: 20241001
  Receipt Date: 20241001
  Transmission Date: 20250115
  Serious: No
  Sender: Public
  Company Number: None

PATIENT
  Age: 27 Year
  Sex: Female
  Weight: 63 kg

DRUGS (8)
  1. KEVZARA [Suspect]
     Active Substance: SARILUMAB
     Indication: Rheumatoid arthritis
     Dosage: OTHER FREQUENCY : BIWEEKLY;?
     Route: 030
  2. PREDNISONE [Concomitant]
     Active Substance: PREDNISONE
  3. FOLIC ACID [Concomitant]
     Active Substance: FOLIC ACID
  4. METHOTREXATE [Concomitant]
     Active Substance: METHOTREXATE
  5. NORTRIPTYLINE [Concomitant]
     Active Substance: NORTRIPTYLINE
  6. ZONISAMIDE [Concomitant]
     Active Substance: ZONISAMIDE
  7. omega 3+turmeric [Concomitant]
  8. AZO [Concomitant]
     Active Substance: PHENAZOPYRIDINE HYDROCHLORIDE

REACTIONS (2)
  - Pruritus [None]
  - Pruritus [None]

NARRATIVE: CASE EVENT DATE: 20240701
